FAERS Safety Report 14038959 (Version 2)
Quarter: 2017Q4

REPORT INFORMATION
  Report Type: Spontaneous
  Country: JP (occurrence: JP)
  Receive Date: 20171004
  Receipt Date: 20171113
  Transmission Date: 20180321
  Serious: Yes (Hospitalization)
  Sender: FDA-Public Use
  Company Number: JP-JNJFOC-20170904032

PATIENT
  Age: 8 Decade
  Sex: Male

DRUGS (4)
  1. ENZALUTAMIDE [Concomitant]
     Active Substance: ENZALUTAMIDE
     Indication: HORMONE-REFRACTORY PROSTATE CANCER
     Dosage: PERORAL MEDICINE
     Route: 048
     Dates: end: 20170705
  2. ZYTIGA [Suspect]
     Active Substance: ABIRATERONE ACETATE
     Indication: HORMONE-REFRACTORY PROSTATE CANCER
     Route: 048
     Dates: start: 20170706, end: 20170825
  3. BICALUTAMIDE. [Concomitant]
     Active Substance: BICALUTAMIDE
     Indication: HORMONE-REFRACTORY PROSTATE CANCER
     Dosage: PERORAL MEDICINE
     Route: 048
  4. ENZALUTAMIDE [Concomitant]
     Active Substance: ENZALUTAMIDE
     Indication: HORMONE-REFRACTORY PROSTATE CANCER
     Dosage: PERORAL MEDICINE
     Route: 048

REACTIONS (2)
  - Decreased appetite [Recovered/Resolved]
  - Malaise [Recovered/Resolved]

NARRATIVE: CASE EVENT DATE: 20170825
